FAERS Safety Report 17954637 (Version 1)
Quarter: 2020Q2

REPORT INFORMATION
  Report Type: Spontaneous
  Country: CA (occurrence: CA)
  Receive Date: 20200629
  Receipt Date: 20200629
  Transmission Date: 20200714
  Serious: Yes (Other)
  Sender: FDA-Public Use
  Company Number: CA-SA-2020SA161389

PATIENT

DRUGS (4)
  1. TECFIDERA [Suspect]
     Active Substance: DIMETHYL FUMARATE
     Indication: MULTIPLE SCLEROSIS
     Route: 065
  2. AUBAGIO [Suspect]
     Active Substance: TERIFLUNOMIDE
     Indication: MULTIPLE SCLEROSIS
     Dosage: 14 MG, QD
     Route: 065
  3. SANDOSTATIN [Suspect]
     Active Substance: OCTREOTIDE ACETATE
     Indication: ACROMEGALY
     Dosage: 30 MG, QM
     Route: 030
  4. SOMAVERT [Suspect]
     Active Substance: PEGVISOMANT
     Indication: PRODUCT USED FOR UNKNOWN INDICATION
     Dosage: 20 MG
     Route: 065

REACTIONS (31)
  - Anxiety [Not Recovered/Not Resolved]
  - Faeces pale [Not Recovered/Not Resolved]
  - Fatigue [Not Recovered/Not Resolved]
  - Insulin-like growth factor decreased [Not Recovered/Not Resolved]
  - Skeletal injury [Not Recovered/Not Resolved]
  - Abdominal pain [Not Recovered/Not Resolved]
  - Fall [Not Recovered/Not Resolved]
  - Nausea [Not Recovered/Not Resolved]
  - Infected dermal cyst [Not Recovered/Not Resolved]
  - Needle issue [Not Recovered/Not Resolved]
  - Hypoaesthesia [Not Recovered/Not Resolved]
  - Paraesthesia [Not Recovered/Not Resolved]
  - Abdominal distension [Not Recovered/Not Resolved]
  - Blood growth hormone increased [Not Recovered/Not Resolved]
  - Neck injury [Not Recovered/Not Resolved]
  - Spinal osteoarthritis [Not Recovered/Not Resolved]
  - Alopecia [Not Recovered/Not Resolved]
  - Pituitary tumour [Not Recovered/Not Resolved]
  - Blood prolactin increased [Not Recovered/Not Resolved]
  - Blood thyroid stimulating hormone decreased [Not Recovered/Not Resolved]
  - Blood pressure increased [Not Recovered/Not Resolved]
  - Diarrhoea [Not Recovered/Not Resolved]
  - Bursitis [Not Recovered/Not Resolved]
  - Depressed mood [Not Recovered/Not Resolved]
  - Joint injury [Not Recovered/Not Resolved]
  - Sciatica [Not Recovered/Not Resolved]
  - Arthralgia [Not Recovered/Not Resolved]
  - Pain [Not Recovered/Not Resolved]
  - Multiple sclerosis relapse [Not Recovered/Not Resolved]
  - Low density lipoprotein increased [Not Recovered/Not Resolved]
  - Nervousness [Not Recovered/Not Resolved]
